FAERS Safety Report 6652003-4 (Version None)
Quarter: 2010Q1

REPORT INFORMATION
  Report Type: 
  Country: None (occurrence: None)
  Receive Date: 20100325
  Receipt Date: 20100315
  Transmission Date: 20100710
  Serious: Yes (Death)
  Sender: FDA-Public Use
  Company Number: DK-ABBOTT-09P-044-0604358-00

PATIENT
  Sex: Female
  Weight: 85.3 kg

DRUGS (12)
  1. ERYTHROMYCIN [Suspect]
     Indication: DRUG USE FOR UNKNOWN INDICATION
     Route: 065
     Dates: start: 20090507
  2. IMIPRAMINE [Suspect]
     Indication: SALIVARY HYPERSECRETION
     Route: 048
     Dates: start: 20080206
  3. LYSANTIN [Suspect]
     Indication: ADVERSE DRUG REACTION
     Route: 048
     Dates: start: 20080206
  4. RIVOTRIL [Suspect]
     Indication: SEDATIVE THERAPY
     Route: 048
     Dates: start: 20090217
  5. CISORDINOL [Suspect]
     Indication: MENTAL DISORDER
     Route: 048
     Dates: start: 20080206
  6. CLOZAPINE [Suspect]
     Indication: ANTIPSYCHOTIC DRUG LEVEL THERAPEUTIC
     Route: 048
     Dates: start: 20080206
  7. RISPERIDONE [Suspect]
     Indication: ANTIPSYCHOTIC DRUG LEVEL THERAPEUTIC
     Route: 048
     Dates: start: 20090216
  8. TRUXAL [Suspect]
     Indication: MENTAL DISORDER
     Route: 048
     Dates: start: 20090318
  9. ACETAMINOPHEN [Concomitant]
     Indication: PAIN
     Route: 048
     Dates: start: 19960919
  10. ACETAMINOPHEN [Concomitant]
     Dates: start: 20090507
  11. LACTULOSE [Concomitant]
     Indication: LAXATIVE SUPPORTIVE CARE
     Dates: start: 20041111
  12. SODIUM PICOSULFATE [Concomitant]
     Indication: LAXATIVE SUPPORTIVE CARE
     Route: 048
     Dates: start: 20070821

REACTIONS (1)
  - SUDDEN DEATH [None]
